FAERS Safety Report 4298805-3 (Version None)
Quarter: 2004Q1

REPORT INFORMATION
  Report Type: 
  Country: None (occurrence: None)
  Receive Date: 20040218
  Receipt Date: 20040212
  Transmission Date: 20041129
  Serious: Yes (Hospitalization)
  Sender: FDA-Public Use
  Company Number: WAES 0402USA00978

PATIENT
  Age: 71 Year
  Sex: Female
  Weight: 73 kg

DRUGS (10)
  1. ALBUTEROL SULFATE [Concomitant]
     Dates: start: 19800101
  2. FOSAMAX [Suspect]
     Route: 048
     Dates: start: 20010111, end: 20040105
  3. ATORVASTATIN CALCIUM [Concomitant]
     Route: 048
     Dates: start: 20031218
  4. DILTIAZEM HYDROCHLORIDE [Concomitant]
     Route: 048
     Dates: start: 19940101
  5. ENBREL [Suspect]
     Indication: PSORIATIC ARTHROPATHY
     Route: 058
     Dates: start: 20031212
  6. FEXOFENADINE HYDROCHLORIDE [Concomitant]
     Route: 048
     Dates: start: 19990101
  7. ISOSORBIDE [Concomitant]
     Route: 048
     Dates: start: 19900101
  8. COZAAR [Concomitant]
     Route: 048
     Dates: start: 19970101
  9. PAROXETINE HYDROCHLORIDE [Concomitant]
     Route: 048
     Dates: start: 19980101
  10. VIOXX [Suspect]
     Route: 048
     Dates: end: 20040105

REACTIONS (3)
  - GASTRIC ULCER HAEMORRHAGE [None]
  - HAEMATEMESIS [None]
  - RECTAL HAEMORRHAGE [None]
